FAERS Safety Report 15849879 (Version 2)
Quarter: 2019Q3

REPORT INFORMATION
  Report Type: Spontaneous
  Country: CA (occurrence: CA)
  Receive Date: 20190121
  Receipt Date: 20190703
  Transmission Date: 20191004
  Serious: Yes (Other)
  Sender: FDA-Public Use
  Company Number: CA-PFM-2019-00382

PATIENT

DRUGS (6)
  1. AMIODARONE [Concomitant]
     Active Substance: AMIODARONE
     Indication: NODAL ARRHYTHMIA
     Dosage: UNK
  2. GLUCAGON. [Suspect]
     Active Substance: GLUCAGON
     Indication: NODAL ARRHYTHMIA
     Dosage: 0.12 MG/KG
     Route: 065
  3. PROPRANOLOL [Suspect]
     Active Substance: PROPRANOLOL HYDROCHLORIDE
     Dosage: 10 MG/KG, QD (1/DAY)
     Route: 065
  4. PROPRANOLOL [Suspect]
     Active Substance: PROPRANOLOL HYDROCHLORIDE
     Indication: OFF LABEL USE
     Dosage: 7.5 MG/KG, QD (1/DAY)
     Route: 065
  5. PROPRANOLOL [Suspect]
     Active Substance: PROPRANOLOL HYDROCHLORIDE
     Indication: NODAL ARRHYTHMIA
     Dosage: 5 MG/KG, QD (1/DAY)
     Route: 065
  6. DIGOXIN. [Concomitant]
     Active Substance: DIGOXIN
     Indication: NODAL ARRHYTHMIA
     Dosage: UNK

REACTIONS (6)
  - Hypoglycaemic seizure [Recovered/Resolved]
  - Off label use [Unknown]
  - Product use in unapproved indication [Unknown]
  - Urine ketone body present [Recovered/Resolved]
  - Hypoglycaemia [Recovered/Resolved]
  - Extra dose administered [Unknown]
